FAERS Safety Report 11535859 (Version 5)
Quarter: 2015Q4

REPORT INFORMATION
  Report Type: Report from Study
  Country: JP (occurrence: JP)
  Receive Date: 20150922
  Receipt Date: 20151230
  Transmission Date: 20160304
  Serious: Yes (Hospitalization, Other)
  Sender: FDA-Public Use
  Company Number: JP-009507513-1509JPN008496

PATIENT
  Age: 1 Month
  Sex: Female
  Weight: .6 kg

DRUGS (3)
  1. DIAZOXIDE [Suspect]
     Active Substance: DIAZOXIDE
     Dosage: 18.3 MG, TID
     Route: 048
     Dates: start: 20150728
  2. DIAZOXIDE [Suspect]
     Active Substance: DIAZOXIDE
     Dosage: 13.3 MG, TID
     Route: 048
     Dates: start: 20150602, end: 20150728
  3. DIAZOXIDE [Suspect]
     Active Substance: DIAZOXIDE
     Indication: HYPOGLYCAEMIA
     Dosage: 8.3 MG, TID
     Route: 048
     Dates: start: 20150522, end: 20150602

REACTIONS (8)
  - Neutrophil count decreased [Unknown]
  - Febrile convulsion [Recovering/Resolving]
  - Pyrexia [Unknown]
  - Dermatitis atopic [Recovering/Resolving]
  - Infection [Unknown]
  - General physical health deterioration [Unknown]
  - Pneumonia [Unknown]
  - Hypertrichosis [Not Recovered/Not Resolved]

NARRATIVE: CASE EVENT DATE: 20150601
